FAERS Safety Report 18170838 (Version 3)
Quarter: 2023Q1

REPORT INFORMATION
  Report Type: Spontaneous
  Country: US (occurrence: US)
  Receive Date: 20200819
  Receipt Date: 20230109
  Transmission Date: 20230418
  Serious: Yes (Other)
  Sender: FDA-Public Use
  Company Number: US-PFIZER INC-2020317887

PATIENT
  Age: 39 Year
  Sex: Male

DRUGS (2)
  1. BENEFIX [Suspect]
     Active Substance: COAGULATION FACTOR IX RECOMBINANT HUMAN\ISOPROPYL ALCOHOL
     Indication: Haemorrhage
     Dosage: 5000 IU EVERY 12/ 24 HOURS AS NEEDED FOR MINOR BLEED
     Route: 042
  2. BENEFIX [Suspect]
     Active Substance: COAGULATION FACTOR IX RECOMBINANT HUMAN\ISOPROPYL ALCOHOL
     Dosage: DOUBLE DOSE TO 10000 UNITS EVERY 24 HOURS AS NEEDED FOR MAJOR DOSE
     Route: 042

REACTIONS (1)
  - Haemorrhage [Unknown]
